FAERS Safety Report 11225085 (Version 1)
Quarter: 2015Q2

REPORT INFORMATION
  Report Type: Spontaneous
  Country: US (occurrence: US)
  Receive Date: 20150629
  Receipt Date: 20150629
  Transmission Date: 20150821
  Serious: Yes (Other)
  Sender: FDA-Public Use
  Company Number: US-PFIZER INC-2015210561

PATIENT

DRUGS (2)
  1. CHILDRENS TYLENOL [Suspect]
     Active Substance: ACETAMINOPHEN
  2. CHILDRENS ADVIL [Suspect]
     Active Substance: IBUPROFEN

REACTIONS (16)
  - Fatigue [Unknown]
  - Oropharyngeal pain [Unknown]
  - Urine output decreased [Unknown]
  - Cheilitis [Unknown]
  - Contusion [Unknown]
  - Urticaria [Unknown]
  - Haemorrhage [Unknown]
  - Rash [Unknown]
  - Pruritus [Unknown]
  - Asthenia [Unknown]
  - Yellow skin [Unknown]
  - Ocular icterus [Unknown]
  - Mouth ulceration [Unknown]
  - Pigmentation disorder [Unknown]
  - Stomatitis [Unknown]
  - Lip ulceration [Unknown]
